FAERS Safety Report 12434376 (Version 4)
Quarter: 2016Q3

REPORT INFORMATION
  Report Type: Spontaneous
  Country: US (occurrence: US)
  Receive Date: 20160603
  Receipt Date: 20160906
  Transmission Date: 20161109
  Serious: Yes (Hospitalization)
  Sender: FDA-Public Use
  Company Number: US-INSYS THERAPEUTICS, INC-INS201605-000245

PATIENT
  Sex: Male

DRUGS (2)
  1. SUBSYS [Suspect]
     Active Substance: FENTANYL
     Indication: BREAKTHROUGH PAIN
     Dates: start: 20160427
  2. OXYCODONE [Concomitant]
     Active Substance: OXYCODONE

REACTIONS (1)
  - Neoplasm progression [Unknown]
